FAERS Safety Report 9782152 (Version 3)
Quarter: 2014Q1

REPORT INFORMATION
  Report Type: Report from Study
  Country: AU (occurrence: AU)
  Receive Date: 20131226
  Receipt Date: 20140129
  Transmission Date: 20141002
  Serious: Yes (Other)
  Sender: FDA-Public Use
  Company Number: AU-ROCHE-1214364

PATIENT
  Age: 56 Year
  Sex: Female

DRUGS (3)
  1. ACTEMRA [Suspect]
     Indication: RHEUMATOID ARTHRITIS
     Route: 042
     Dates: start: 20121026
  2. ARAVA [Concomitant]
     Route: 048
     Dates: start: 2012
  3. OSTELIN (AUSTRALIA) [Concomitant]
     Indication: VITAMIN D
     Route: 048
     Dates: start: 20120114

REACTIONS (7)
  - Cough [Not Recovered/Not Resolved]
  - Vascular headache [Not Recovered/Not Resolved]
  - Local swelling [Not Recovered/Not Resolved]
  - Joint swelling [Not Recovered/Not Resolved]
  - Headache [Unknown]
  - Myalgia [Not Recovered/Not Resolved]
  - Migraine [Recovered/Resolved]
